FAERS Safety Report 17114611 (Version 6)
Quarter: 2025Q3

REPORT INFORMATION
  Report Type: Report from Study
  Country: EU (occurrence: EU)
  Receive Date: 20191205
  Receipt Date: 20250825
  Transmission Date: 20251021
  Serious: Yes (Death, Other)
  Sender: AUROBINDO
  Company Number: EU-BRISTOL-MYERS SQUIBB COMPANY-BMS-2019-005985

PATIENT
  Age: 62 Year
  Sex: Male

DRUGS (22)
  1. MELPHALAN [Suspect]
     Active Substance: MELPHALAN
     Indication: Bone marrow conditioning regimen
     Route: 065
  2. MELPHALAN [Suspect]
     Active Substance: MELPHALAN
     Indication: Non-Hodgkin^s lymphoma
  3. DOXORUBICIN [Suspect]
     Active Substance: DOXORUBICIN
     Indication: Non-Hodgkin^s lymphoma
     Route: 065
  4. DEXAMETHASONE [Suspect]
     Active Substance: DEXAMETHASONE
     Indication: Non-Hodgkin^s lymphoma
     Route: 065
  5. METHOTREXATE [Suspect]
     Active Substance: METHOTREXATE
     Indication: Non-Hodgkin^s lymphoma
     Route: 065
  6. PREDNISONE [Suspect]
     Active Substance: PREDNISONE
     Indication: Non-Hodgkin^s lymphoma
     Route: 065
  7. CARMUSTINE [Suspect]
     Active Substance: CARMUSTINE
     Indication: Bone marrow conditioning regimen
     Route: 065
  8. CARMUSTINE [Suspect]
     Active Substance: CARMUSTINE
     Indication: Non-Hodgkin^s lymphoma
  9. CISPLATIN [Suspect]
     Active Substance: CISPLATIN
     Indication: Non-Hodgkin^s lymphoma
     Route: 065
  10. CHLORAMBUCIL [Suspect]
     Active Substance: CHLORAMBUCIL
     Indication: Non-Hodgkin^s lymphoma
     Route: 065
  11. CYCLOPHOSPHAMIDE [Suspect]
     Active Substance: CYCLOPHOSPHAMIDE
     Indication: Non-Hodgkin^s lymphoma
     Route: 065
  12. CYTARABINE [Suspect]
     Active Substance: CYTARABINE
     Indication: Bone marrow conditioning regimen
     Route: 065
  13. CYTARABINE [Suspect]
     Active Substance: CYTARABINE
     Indication: Non-Hodgkin^s lymphoma
  14. DANAZOL [Suspect]
     Active Substance: DANAZOL
     Indication: Transplant failure
     Route: 065
  15. CYCLOPHOSPHAMIDE [Suspect]
     Active Substance: CYCLOPHOSPHAMIDE
     Indication: Non-Hodgkin^s lymphoma
     Route: 042
  16. ERYTHROPOIETIN [Suspect]
     Active Substance: ERYTHROPOIETIN
     Indication: Transplant failure
     Route: 065
  17. ETOPOSIDE [Suspect]
     Active Substance: ETOPOSIDE
     Indication: Non-Hodgkin^s lymphoma
     Route: 065
  18. ETOPOSIDE [Suspect]
     Active Substance: ETOPOSIDE
     Indication: Bone marrow conditioning regimen
  19. IFOSFAMIDE [Suspect]
     Active Substance: IFOSFAMIDE
     Indication: Non-Hodgkin^s lymphoma
     Route: 065
  20. PROCARBAZINE [Suspect]
     Active Substance: PROCARBAZINE
     Indication: Non-Hodgkin^s lymphoma
     Route: 065
  21. RITUXIMAB [Suspect]
     Active Substance: RITUXIMAB
     Indication: Non-Hodgkin^s lymphoma
     Route: 065
  22. VINCRISTINE [Suspect]
     Active Substance: VINCRISTINE
     Indication: Non-Hodgkin^s lymphoma
     Route: 065

REACTIONS (4)
  - Blood stem cell transplant failure [Fatal]
  - Myelodysplastic syndrome [Fatal]
  - Non-Hodgkin^s lymphoma recurrent [Unknown]
  - Mean cell volume increased [Unknown]
